FAERS Safety Report 13635542 (Version 4)
Quarter: 2017Q3

REPORT INFORMATION
  Report Type: Spontaneous
  Country: US (occurrence: US)
  Receive Date: 20170609
  Receipt Date: 20170727
  Transmission Date: 20171127
  Serious: No
  Sender: FDA-Public Use
  Company Number: US-PFIZER INC-2017250114

PATIENT
  Age: 66 Year
  Sex: Female
  Weight: 53 kg

DRUGS (3)
  1. SUTENT [Suspect]
     Active Substance: SUNITINIB MALATE
     Dosage: 25 MG, CYCLIC (DAILY) (2 CAPSULES DAILY)
     Dates: start: 20170717, end: 20170717
  2. SUTENT [Suspect]
     Active Substance: SUNITINIB MALATE
     Indication: NEUROENDOCRINE CARCINOMA
     Dosage: 37.5 MG, CYCLIC (DAILY)
     Route: 048
     Dates: start: 20170527
  3. SUTENT [Suspect]
     Active Substance: SUNITINIB MALATE
     Dosage: 37.5 MG, CYCLIC (DAILY) (1 CAPSULE DAILY) (1-28 Q 28 DAY)
     Route: 048
     Dates: start: 20170527, end: 20170717

REACTIONS (13)
  - Pharyngeal oedema [Unknown]
  - Throat tightness [Unknown]
  - Asthenia [Unknown]
  - Vomiting [Unknown]
  - Throat irritation [Unknown]
  - Dyspepsia [Unknown]
  - Dry mouth [Unknown]
  - Drug dose omission [Unknown]
  - Toothache [Unknown]
  - Dysphagia [Unknown]
  - Fatigue [Unknown]
  - Diarrhoea [Unknown]
  - Dry skin [Unknown]

NARRATIVE: CASE EVENT DATE: 2017
